FAERS Safety Report 9817268 (Version 2)
Quarter: 2014Q1

REPORT INFORMATION
  Report Type: Spontaneous
  Country: CH (occurrence: CH)
  Receive Date: 20140115
  Receipt Date: 20140115
  Transmission Date: 20141002
  Serious: Yes (Hospitalization, Disabling)
  Sender: FDA-Public Use
  Company Number: CH-PFIZER INC-2004062989

PATIENT
  Age: 53 Year
  Sex: Female

DRUGS (11)
  1. ZOLOFT [Suspect]
     Indication: DEPRESSION
     Dosage: 50 MG, UNK
     Route: 048
     Dates: start: 2002
  2. CARDIZEM [Interacting]
     Indication: HYPERTENSION
     Dosage: 180 MG, DAILY
     Route: 048
  3. TEMESTA [Interacting]
     Indication: ANXIETY
     Route: 048
  4. EFEXOR ER [Interacting]
     Indication: DEPRESSION
     Dosage: 150 MG, DAILY
     Route: 048
  5. ACETYLSALICYLIC ACID [Concomitant]
     Route: 065
  6. OMEPRAZOLE [Concomitant]
     Route: 065
  7. CELECOXIB [Concomitant]
     Route: 065
     Dates: end: 20040720
  8. MEFENAMIC ACID [Concomitant]
     Route: 065
  9. GINSENG [Concomitant]
     Route: 065
  10. ATORVASTATIN CALCIUM [Concomitant]
     Route: 065
  11. PARACETAMOL [Concomitant]
     Route: 065

REACTIONS (15)
  - Drug interaction [Not Recovered/Not Resolved]
  - Nervous system disorder [Not Recovered/Not Resolved]
  - Hemiparesis [Not Recovered/Not Resolved]
  - Serotonin syndrome [Not Recovered/Not Resolved]
  - Facial paresis [Not Recovered/Not Resolved]
  - Myoclonus [Not Recovered/Not Resolved]
  - VIIth nerve paralysis [Not Recovered/Not Resolved]
  - Headache [Not Recovered/Not Resolved]
  - Hypoaesthesia [Not Recovered/Not Resolved]
  - Paraesthesia [Not Recovered/Not Resolved]
  - Photophobia [Not Recovered/Not Resolved]
  - Nervousness [Not Recovered/Not Resolved]
  - Neck pain [Not Recovered/Not Resolved]
  - Gait disturbance [Not Recovered/Not Resolved]
  - Hyperhidrosis [Not Recovered/Not Resolved]
